FAERS Safety Report 9547255 (Version 1)
Quarter: 2013Q3

REPORT INFORMATION
  Report Type: Spontaneous
  Country: US (occurrence: None)
  Receive Date: 20130920
  Receipt Date: 20130920
  Transmission Date: 20140515
  Serious: Yes (Hospitalization)
  Sender: FDA-Public Use
  Company Number: US-000794

PATIENT
  Sex: Female

DRUGS (2)
  1. GATTEX [Suspect]
     Indication: SHORT-BOWEL SYNDROME
     Dosage: 0.4 ML QD, STREN/VOLUM: 0.4 ML| FREQU: ONCE DAILY SUBCUTANEOUS)
     Route: 058
     Dates: start: 2013
  2. SOLUTIONS FOR PARENTERAL NUTRITION (UNKNOWN) [Concomitant]

REACTIONS (1)
  - Investigation [None]
